FAERS Safety Report 22135504 (Version 1)
Quarter: 2023Q1

REPORT INFORMATION
  Report Type: Spontaneous
  Country: US (occurrence: US)
  Receive Date: 20230324
  Receipt Date: 20230324
  Transmission Date: 20230418
  Serious: No
  Sender: FDA-Public Use
  Company Number: US-AYTU-2022-AYT-00461

PATIENT

DRUGS (2)
  1. ADZENYS XR-ODT [Suspect]
     Active Substance: AMPHETAMINE
     Indication: Attention deficit hyperactivity disorder
     Dosage: 12.5 MILLIGRAM, QD
     Route: 048
     Dates: start: 2022
  2. ADZENYS XR-ODT [Suspect]
     Active Substance: AMPHETAMINE
     Dosage: 6.3 MILLIGRAM, QD
     Route: 048
     Dates: start: 2022

REACTIONS (3)
  - Somnolence [Not Recovered/Not Resolved]
  - Product solubility abnormal [Unknown]
  - Therapeutic response shortened [Unknown]

NARRATIVE: CASE EVENT DATE: 20220101
